FAERS Safety Report 9205987 (Version 2)
Quarter: 2013Q2

REPORT INFORMATION
  Report Type: Spontaneous
  Country: JP (occurrence: None)
  Receive Date: 20130401
  Receipt Date: 20130422
  Transmission Date: 20140414
  Serious: Yes (Hospitalization, Disabling, Other)
  Sender: FDA-Public Use
  Company Number: 2013P1003825

PATIENT
  Age: 49 Month
  Sex: Male

DRUGS (4)
  1. ETHOSUXIMIDE [Suspect]
     Indication: EPILEPSY
  2. ZONISAMIDE [Concomitant]
  3. ETHYL LOFLAZEPATE [Concomitant]
  4. POTASSIUM BROMIDE [Concomitant]

REACTIONS (6)
  - Aplastic anaemia [None]
  - Thrombocytopenia [None]
  - Histone antibody positive [None]
  - Antinuclear antibody positive [None]
  - Protein-losing gastroenteropathy [None]
  - Confusional state [None]
